FAERS Safety Report 21595568 (Version 2)
Quarter: 2022Q4

REPORT INFORMATION
  Report Type: Spontaneous
  Country: US (occurrence: US)
  Receive Date: 20221115
  Receipt Date: 20221115
  Transmission Date: 20230113
  Serious: No
  Sender: FDA-Public Use
  Company Number: US-AMNEAL PHARMACEUTICALS-2021-AMRX-04476

PATIENT
  Age: 16 Year
  Sex: Male

DRUGS (1)
  1. ISOTRETINOIN [Suspect]
     Active Substance: ISOTRETINOIN
     Indication: Acne
     Dosage: 30 MILLIGRAM, 1 /DAY
     Route: 048
     Dates: start: 20210809, end: 202110

REACTIONS (2)
  - Xerosis [Unknown]
  - Cheilitis [Unknown]

NARRATIVE: CASE EVENT DATE: 20210907
